FAERS Safety Report 9113643 (Version 1)
Quarter: 2013Q1

REPORT INFORMATION
  Report Type: Spontaneous
  Country: US (occurrence: US)
  Receive Date: 20130208
  Receipt Date: 20130208
  Transmission Date: 20140127
  Serious: Yes (Death, Hospitalization)
  Sender: FDA-Public Use
  Company Number: CHPA2013US002585

PATIENT
  Age: 29 Year
  Sex: Male
  Weight: 78.6 kg

DRUGS (3)
  1. CAFFEINE [Suspect]
     Dosage: UNK, UNK
     Route: 048
  2. LIDOCAINE [Suspect]
     Dosage: UNK, UNK
     Route: 048
  3. TETRAHYDROCANNABINOL [Suspect]
     Dosage: UNK, UNK
     Route: 048

REACTIONS (15)
  - Death [Fatal]
  - Gastrointestinal disorder [Fatal]
  - Tremor [Fatal]
  - Presyncope [Fatal]
  - Convulsion [Fatal]
  - Pulse absent [Fatal]
  - Unresponsive to stimuli [Fatal]
  - Coma [Fatal]
  - Hypoxic-ischaemic encephalopathy [Fatal]
  - Brain oedema [Fatal]
  - Pulmonary congestion [Fatal]
  - Pulmonary oedema [Fatal]
  - Myocardial infarction [Fatal]
  - Rhabdomyolysis [Fatal]
  - Cardio-respiratory arrest [Fatal]
